FAERS Safety Report 8791745 (Version 1)
Quarter: 2012Q4

REPORT INFORMATION
  Report Type: 
  Country: US (occurrence: US)
  Receive Date: 20120918
  Receipt Date: 20120918
  Transmission Date: 20130627
  Serious: Yes (Other)
  Sender: FDA-Public Use
  Company Number: US-BAYER-2012-096447

PATIENT
  Age: 32 Year
  Sex: Female

DRUGS (1)
  1. ULTRAVIST [Suspect]
     Dosage: 108 ml, ONCE
     Route: 042
     Dates: start: 20120914, end: 20120914

REACTIONS (3)
  - Throat tightness [None]
  - Erythema [None]
  - Pruritus [None]
